FAERS Safety Report 13576776 (Version 1)
Quarter: 2017Q2

REPORT INFORMATION
  Report Type: Spontaneous
  Country: US (occurrence: US)
  Receive Date: 20170524
  Receipt Date: 20170524
  Transmission Date: 20170830
  Serious: Yes (Hospitalization)
  Sender: FDA-Public Use
  Company Number: None

PATIENT
  Age: 19 Year
  Sex: Female
  Weight: 55 kg

DRUGS (11)
  1. METHOTREXATE. [Suspect]
     Active Substance: METHOTREXATE
     Dates: end: 20170413
  2. CYTARABINE. [Suspect]
     Active Substance: CYTARABINE
     Dates: end: 20170413
  3. VINCRISTINE SULFATE. [Suspect]
     Active Substance: VINCRISTINE SULFATE
     Dates: end: 20170308
  4. ERWINIA ASPARAGINASE [Suspect]
     Active Substance: ASPARAGINASE ERWINIA CHRYSANTHEMI
     Dates: end: 20170316
  5. MERCAPTOPURINE. [Suspect]
     Active Substance: MERCAPTOPURINE
     Dates: end: 20170223
  6. THIOGUANINE (6-TG) [Suspect]
     Active Substance: THIOGUANINE ANHYDROUS
     Dates: end: 20170416
  7. DAUNORUBICIN [Suspect]
     Active Substance: DAUNORUBICIN
     Dates: end: 20160819
  8. DOXORUBICIN HYDROCHLORIDE. [Suspect]
     Active Substance: DOXORUBICIN HYDROCHLORIDE
     Dates: end: 20170308
  9. PREDNISONE. [Suspect]
     Active Substance: PREDNISONE
     Dates: end: 20160825
  10. CYCLOPHOSPHAMIDE. [Suspect]
     Active Substance: CYCLOPHOSPHAMIDE
     Dates: end: 20170330
  11. ONCASPAR [Suspect]
     Active Substance: PEGASPARGASE
     Dates: end: 20160921

REACTIONS (8)
  - Bilirubin conjugated increased [None]
  - Febrile neutropenia [None]
  - Abdominal pain upper [None]
  - Ascites [None]
  - Blood bilirubin increased [None]
  - Fluid retention [None]
  - Venoocclusive disease [None]
  - Gallbladder enlargement [None]

NARRATIVE: CASE EVENT DATE: 20170413
